FAERS Safety Report 7330367-6 (Version None)
Quarter: 2011Q1

REPORT INFORMATION
  Report Type: 
  Country: None (occurrence: None)
  Receive Date: 20110304
  Receipt Date: 20110222
  Transmission Date: 20110831
  Serious: Yes (Hospitalization)
  Sender: FDA-Public Use
  Company Number: US-BIOGENIDEC-2006BI018128

PATIENT
  Age: 63 Year
  Sex: Female

DRUGS (1)
  1. AVONEX [Suspect]
     Indication: MULTIPLE SCLEROSIS
     Route: 030
     Dates: start: 20040104

REACTIONS (5)
  - OEDEMA PERIPHERAL [None]
  - LUMBAR SPINAL STENOSIS [None]
  - INFLUENZA LIKE ILLNESS [None]
  - ERYTHEMA [None]
  - BURNING SENSATION [None]
